FAERS Safety Report 25369911 (Version 1)
Quarter: 2025Q2

REPORT INFORMATION
  Report Type: Spontaneous
  Country: CN (occurrence: CN)
  Receive Date: 20250528
  Receipt Date: 20250528
  Transmission Date: 20250717
  Serious: Yes (Hospitalization)
  Sender: Alora Pharma
  Company Number: CN-AVION PHARMACEUTICALS-2025ALO02233

PATIENT
  Age: 72 Year
  Sex: Female

DRUGS (10)
  1. CARBIDOPA AND LEVODOPA [Suspect]
     Active Substance: CARBIDOPA\LEVODOPA
     Indication: Parkinson^s disease
     Dosage: BENSERAZIDE/LEVODOPA 12.5/50 MG
  2. CARBIDOPA AND LEVODOPA [Suspect]
     Active Substance: CARBIDOPA\LEVODOPA
     Dosage: LEVODOPA/CARBIDOPA/ENTACAPONE 100/50/200 MG
  3. CARBIDOPA AND LEVODOPA [Suspect]
     Active Substance: CARBIDOPA\LEVODOPA
     Dosage: LEVODOPA/CARBIDOPA/ENTACAPONE 50/25/100 MG
  4. CARBIDOPA AND LEVODOPA [Suspect]
     Active Substance: CARBIDOPA\LEVODOPA
     Dosage: BENSERAZIDE/LEVODOPA 12.5/50
  5. BENSERAZIDE [Suspect]
     Active Substance: BENSERAZIDE
     Indication: Parkinson^s disease
     Dosage: BENSERAZIDE/LEVODOPA 12.5/50 MG
  6. BENSERAZIDE [Suspect]
     Active Substance: BENSERAZIDE
     Dosage: BENSERAZIDE/LEVODOPA 12.5/50
  7. ENTACAPONE [Suspect]
     Active Substance: ENTACAPONE
     Indication: Parkinson^s disease
     Dosage: LEVODOPA/CARBIDOPA/ENTACAPONE 100/50/200 MG
  8. ENTACAPONE [Suspect]
     Active Substance: ENTACAPONE
     Dosage: LEVODOPA/CARBIDOPA/ENTACAPONE 50/25/100 MG
  9. SELEGILINE [Suspect]
     Active Substance: SELEGILINE
     Indication: Parkinson^s disease
     Dosage: 5 MG, 1X/DAY
  10. AMANTADINE [Suspect]
     Active Substance: AMANTADINE
     Dosage: 100 MG, 2X/DAY

REACTIONS (2)
  - Dyskinesia hyperpyrexia syndrome [Recovered/Resolved]
  - Dyskinesia [Recovered/Resolved]
